FAERS Safety Report 4530936-2 (Version None)
Quarter: 2004Q4

REPORT INFORMATION
  Report Type: 
  Country: None (occurrence: None)
  Receive Date: 20041217
  Receipt Date: 20041019
  Transmission Date: 20050328
  Serious: Yes (Hospitalization)
  Sender: FDA-Public Use
  Company Number: DE-MERCK-0410DEU00552

PATIENT
  Age: 57 Year
  Sex: Female
  Weight: 96 kg

DRUGS (11)
  1. VIOXX [Suspect]
     Indication: CAUDA EQUINA SYNDROME
     Route: 048
     Dates: start: 20000101
  2. VIOXX [Suspect]
     Route: 048
  3. VIOXX [Suspect]
     Indication: MUSCULOSKELETAL PAIN
     Route: 048
     Dates: start: 20000101
  4. VIOXX [Suspect]
     Route: 048
  5. BISOPROLOL [Concomitant]
     Route: 048
     Dates: start: 20030101
  6. ZOCOR [Concomitant]
     Route: 048
     Dates: start: 20030101
  7. ASPIRIN [Concomitant]
     Route: 048
     Dates: start: 20030101
  8. ISOSORBIDE MONONITRATE [Concomitant]
     Route: 048
     Dates: start: 20010801
  9. TORSEMIDE [Concomitant]
     Route: 048
     Dates: start: 20030101
  10. BETAXOLOL HYDROCHLORIDE [Concomitant]
     Route: 048
     Dates: start: 20010801
  11. ASPIRIN [Concomitant]
     Route: 048
     Dates: start: 20010801

REACTIONS (6)
  - ABDOMINAL PAIN UPPER [None]
  - ANGINA PECTORIS [None]
  - ATRIAL FIBRILLATION [None]
  - BLOOD PRESSURE INCREASED [None]
  - DYSPEPSIA [None]
  - TACHYARRHYTHMIA [None]
